FAERS Safety Report 4919360-8 (Version None)
Quarter: 2006Q1

REPORT INFORMATION
  Report Type: 
  Country: None (occurrence: None)
  Receive Date: 20060216
  Receipt Date: 20060202
  Transmission Date: 20060701
  Serious: Yes (Hospitalization)
  Sender: FDA-Public Use
  Company Number: 200610675BWH

PATIENT
  Age: 50 Year
  Sex: Male
  Weight: 67.5 kg

DRUGS (17)
  1. SORAFENIB [Suspect]
     Indication: METASTATIC RENAL CELL CARCINOMA
     Dosage: SEE IMAGE
     Route: 048
     Dates: start: 20051110, end: 20051207
  2. SORAFENIB [Suspect]
     Indication: METASTATIC RENAL CELL CARCINOMA
     Dosage: SEE IMAGE
     Route: 048
     Dates: start: 20051208, end: 20060130
  3. LANOXIN [Concomitant]
  4. LOTENSIN HCT [Concomitant]
  5. MULTI-VITAMIN [Concomitant]
  6. PROCHLORPERAZINE [Concomitant]
  7. OXYCODONE [Concomitant]
  8. WELLBUTRIN [Concomitant]
  9. FERROUS SULFATE TAB [Concomitant]
  10. AMOXICILLIN [Concomitant]
  11. NASACORT [Concomitant]
  12. FLEXERIL [Concomitant]
  13. CELEXA [Concomitant]
  14. ABSORBINE JR [Concomitant]
  15. UDDER CREAM (LOTION) [Concomitant]
  16. GOLD BOND [Concomitant]
  17. BENEFIBER [Concomitant]

REACTIONS (9)
  - GASTRITIS EROSIVE [None]
  - GASTROINTESTINAL ULCER [None]
  - HAEMATOCRIT DECREASED [None]
  - HAEMOGLOBIN DECREASED [None]
  - HAEMORRHOIDS [None]
  - HYPOTENSION [None]
  - MEAN CELL VOLUME ABNORMAL [None]
  - RED BLOOD CELL COUNT DECREASED [None]
  - STRESS ULCER [None]
